FAERS Safety Report 14313791 (Version 1)
Quarter: 2017Q4

REPORT INFORMATION
  Report Type: Spontaneous
  Country: US (occurrence: US)
  Receive Date: 20171220
  Receipt Date: 20171220
  Transmission Date: 20180321
  Serious: Yes (Other)
  Sender: FDA-Public Use
  Company Number: None

PATIENT
  Age: 63 Year
  Sex: Female

DRUGS (1)
  1. REMICADE [Suspect]
     Active Substance: INFLIXIMAB
     Indication: PRODUCT USED FOR UNKNOWN INDICATION
     Dosage: 100MG/VL EVERY 6 WEEKS INTRAVENEOUSLY
     Route: 042
     Dates: start: 20171019

REACTIONS (2)
  - Arthritis [None]
  - Arthralgia [None]

NARRATIVE: CASE EVENT DATE: 20171204
